FAERS Safety Report 19811080 (Version 1)
Quarter: 2021Q3

REPORT INFORMATION
  Report Type: Spontaneous
  Country: US (occurrence: US)
  Receive Date: 20210910
  Receipt Date: 20210910
  Transmission Date: 20211014
  Serious: No
  Sender: FDA-Public Use
  Company Number: US-ROCHE-2512997

PATIENT
  Age: 35 Year
  Sex: Female
  Weight: 73.55 kg

DRUGS (1)
  1. PEGASYS [Suspect]
     Active Substance: PEGINTERFERON ALFA-2A
     Indication: LEUKAEMIA
     Route: 058
     Dates: start: 201910

REACTIONS (8)
  - Facial spasm [Unknown]
  - Anger [Unknown]
  - Malaise [Unknown]
  - Arthralgia [Unknown]
  - Fatigue [Unknown]
  - Memory impairment [Unknown]
  - Maternal exposure during pregnancy [Unknown]
  - Psoriasis [Not Recovered/Not Resolved]

NARRATIVE: CASE EVENT DATE: 201910
